FAERS Safety Report 24978072 (Version 1)
Quarter: 2025Q1

REPORT INFORMATION
  Report Type: Spontaneous
  Country: BR (occurrence: BR)
  Receive Date: 20250217
  Receipt Date: 20250217
  Transmission Date: 20250408
  Serious: Yes (Other)
  Sender: BAUSCH AND LOMB
  Company Number: BR-BAUSCH-BL-2025-002161

PATIENT
  Age: 61 Year
  Sex: Female

DRUGS (5)
  1. XIFAXAN [Suspect]
     Active Substance: RIFAXIMIN
     Indication: Gastrointestinal microorganism overgrowth
     Route: 048
     Dates: start: 20250130, end: 20250201
  2. XIFAXAN [Suspect]
     Active Substance: RIFAXIMIN
     Indication: Off label use
  3. OTILONIUM BROMIDE [Concomitant]
     Active Substance: OTILONIUM BROMIDE
     Indication: Product used for unknown indication
     Route: 048
     Dates: end: 20250201
  4. CITALOPRAM [Concomitant]
     Active Substance: CITALOPRAM
     Indication: Depression
     Route: 048
  5. BIFILACT [Concomitant]
     Indication: Product used for unknown indication
     Route: 048
     Dates: end: 20250201

REACTIONS (17)
  - Pharyngeal erythema [Recovered/Resolved]
  - Decreased immune responsiveness [Recovering/Resolving]
  - Pain [Recovering/Resolving]
  - Influenza [Recovering/Resolving]
  - Throat irritation [Recovering/Resolving]
  - Erythema [Recovered/Resolved]
  - Abdominal discomfort [Recovered/Resolved]
  - Asthenia [Recovering/Resolving]
  - Dysphagia [Recovered/Resolved]
  - Fatigue [Recovering/Resolving]
  - Pyrexia [Recovering/Resolving]
  - Vomiting [Recovered/Resolved]
  - Decreased appetite [Recovered/Resolved]
  - Cough [Not Recovered/Not Resolved]
  - Depressed mood [Unknown]
  - Insomnia [Unknown]
  - Intentional product use issue [Recovered/Resolved]

NARRATIVE: CASE EVENT DATE: 20250101
